FAERS Safety Report 9668144 (Version 1)
Quarter: 2013Q4

REPORT INFORMATION
  Report Type: Spontaneous
  Country: US (occurrence: None)
  Receive Date: 20131101
  Receipt Date: 20131101
  Transmission Date: 20140711
  Serious: Yes (Hospitalization, Other)
  Sender: FDA-Public Use
  Company Number: 2013AP009391

PATIENT
  Age: 70 Year
  Sex: Female

DRUGS (1)
  1. CARBIDOPA AND LEVODOPA [Suspect]

REACTIONS (9)
  - Factitious disorder [None]
  - Psychotic disorder [None]
  - Parkinsonism [None]
  - Drug dependence [None]
  - Intentional overdose [None]
  - Freezing phenomenon [None]
  - Abnormal behaviour [None]
  - Intentional drug misuse [None]
  - Drug withdrawal syndrome [None]
